FAERS Safety Report 12199618 (Version 2)
Quarter: 2016Q2

REPORT INFORMATION
  Report Type: Spontaneous
  Country: JP (occurrence: JP)
  Receive Date: 20160322
  Receipt Date: 20160407
  Transmission Date: 20160815
  Serious: Yes (Other)
  Sender: FDA-Public Use
  Company Number: JP-PFIZER INC-2016160609

PATIENT

DRUGS (1)
  1. SUTENT [Suspect]
     Active Substance: SUNITINIB MALATE
     Indication: RENAL CELL CARCINOMA
     Dosage: 50 MG, DAILY
     Route: 048
     Dates: start: 20110303

REACTIONS (7)
  - Ascites [Unknown]
  - Nephrogenic anaemia [Unknown]
  - Pleural effusion [Unknown]
  - Nephrotic syndrome [Unknown]
  - Disease progression [Unknown]
  - Hypoaesthesia [Recovered/Resolved]
  - Renal cell carcinoma [Unknown]

NARRATIVE: CASE EVENT DATE: 201211
